FAERS Safety Report 5418429-1 (Version None)
Quarter: 2007Q4

REPORT INFORMATION
  Report Type: 
  Country: None (occurrence: None)
  Receive Date: 20070718
  Receipt Date: 20060816
  Transmission Date: 20080405
  Serious: Yes (Hospitalization)
  Sender: FDA-Public Use
  Company Number: 2005161502

PATIENT
  Age: 49 Year
  Sex: Male
  Weight: 98.8842 kg

DRUGS (5)
  1. CELEBREX [Suspect]
     Indication: ARTHRITIS
  2. CELEBREX [Suspect]
     Indication: PAIN
  3. BEXTRA [Suspect]
     Indication: ARTHRITIS
     Dosage: 40 MG (20 MG)
     Dates: start: 20020901, end: 20050301
  4. BEXTRA [Suspect]
     Indication: PAIN
     Dosage: 40 MG (20 MG)
     Dates: start: 20020901, end: 20050301
  5. VIOXX [Suspect]
     Indication: DRUG USE FOR UNKNOWN INDICATION

REACTIONS (1)
  - EMBOLISM [None]
